FAERS Safety Report 8251810-4 (Version None)
Quarter: 2012Q2

REPORT INFORMATION
  Report Type: 
  Country: None (occurrence: None)
  Receive Date: 20120402
  Receipt Date: 20120326
  Transmission Date: 20120825
  Serious: Yes (Hospitalization, Other)
  Sender: FDA-Public Use
  Company Number: FR-PFIZER INC-2012076620

PATIENT
  Age: 90 Year
  Sex: Female

DRUGS (7)
  1. CELEBREX [Suspect]
     Indication: OSTEOARTHRITIS
     Dosage: 100 MG, 1X/DAY
     Route: 048
     Dates: start: 20120120, end: 20120202
  2. TRAMADOL HCL [Suspect]
     Indication: ANALGESIC THERAPY
     Dosage: 100 MG, 1X/DAY
     Route: 048
     Dates: start: 20120126, end: 20120202
  3. STRESAM [Concomitant]
  4. NICARDIPINE HYDROCHLORIDE [Concomitant]
     Dosage: 20 MG, UNK
  5. TRANSIPEG [Concomitant]
     Dosage: UNK
  6. PERINDOPRIL [Concomitant]
     Dosage: 4 MG, UNK
  7. FLECTOR EP TISSUGEL [Concomitant]
     Dosage: UNK
     Dates: start: 20120126

REACTIONS (10)
  - ACUTE PULMONARY OEDEMA [None]
  - OEDEMA PERIPHERAL [None]
  - FALL [None]
  - ATRIAL FIBRILLATION [None]
  - PRODUCTIVE COUGH [None]
  - DYSPNOEA [None]
  - RALES [None]
  - BACK PAIN [None]
  - ANXIETY [None]
  - RIB FRACTURE [None]
